FAERS Safety Report 7025454-6 (Version None)
Quarter: 2010Q4

REPORT INFORMATION
  Report Type: 
  Country: None (occurrence: None)
  Receive Date: 20101001
  Receipt Date: 20100929
  Transmission Date: 20110411
  Serious: Yes (Death, Other)
  Sender: FDA-Public Use
  Company Number: PHHY2010DE64530

PATIENT
  Sex: Female

DRUGS (1)
  1. EXELON [Suspect]
     Indication: FALL
     Dosage: UNK
     Route: 062
     Dates: start: 20100804

REACTIONS (2)
  - DEATH [None]
  - PARKINSON'S DISEASE [None]
